FAERS Safety Report 4588777-6 (Version None)
Quarter: 2005Q1

REPORT INFORMATION
  Report Type: 
  Country: None (occurrence: None)
  Receive Date: 20050222
  Receipt Date: 20050126
  Transmission Date: 20050727
  Serious: Yes (Hospitalization)
  Sender: FDA-Public Use
  Company Number: PHBS2005JP01553

PATIENT
  Age: 16 Year
  Sex: Male

DRUGS (6)
  1. NEORAL [Suspect]
     Indication: RENAL TRANSPLANT
     Dosage: 200 MG/DAY
     Route: 048
     Dates: start: 20020701
  2. PROGRAF [Concomitant]
     Indication: RENAL TRANSPLANT
     Dosage: 2 MG/DAY
     Route: 048
     Dates: start: 20011001, end: 20020701
  3. PREDONINE [Concomitant]
     Indication: RENAL TRANSPLANT
     Dosage: 50 MG/DAY
     Route: 048
     Dates: start: 20011001
  4. PREDONINE [Concomitant]
     Dosage: 7.5 MG EVERY SECOND DAY
     Route: 048
  5. CELLCEPT [Concomitant]
     Indication: RENAL TRANSPLANT
     Dosage: 1 G/DAY
     Route: 048
     Dates: start: 20021001
  6. CELLCEPT [Concomitant]
     Dosage: 1 G/DAY
     Route: 048
     Dates: start: 20021001

REACTIONS (8)
  - ABDOMINAL PAIN [None]
  - BLOOD CREATININE INCREASED [None]
  - CALCULUS URINARY [None]
  - HYDRONEPHROSIS [None]
  - HYDROURETER [None]
  - URETERIC DIVERSION OPERATION [None]
  - URETERIC STENOSIS [None]
  - VOMITING [None]
